FAERS Safety Report 9869659 (Version 1)
Quarter: 2014Q1

REPORT INFORMATION
  Report Type: Spontaneous
  Country: FR (occurrence: None)
  Receive Date: 20140131
  Receipt Date: 20140131
  Transmission Date: 20141002
  Serious: Yes (Death, Life-Threatening, Other)
  Sender: FDA-Public Use
  Company Number: FK201400258

PATIENT
  Age: 6 Day
  Sex: Male

DRUGS (2)
  1. PROTAMINE SULFATE [Suspect]
     Indication: HEPARIN NEUTRALISATION THERAPY
     Dosage: ONDE DOSE?(NOT OTHERWISE SPECIFIED)
     Route: 042
  2. HEPARIN (HEPARIN) [Concomitant]

REACTIONS (8)
  - Multi-organ failure [None]
  - Mediastinitis [None]
  - Ventricular fibrillation [None]
  - Haemorrhage [None]
  - Neonatal hypotension [None]
  - Shock [None]
  - Staphylococcal infection [None]
  - Death neonatal [None]
